FAERS Safety Report 7834628-3 (Version None)
Quarter: 2011Q4

REPORT INFORMATION
  Report Type: 
  Country: None (occurrence: None)
  Receive Date: 20111024
  Receipt Date: 20110131
  Transmission Date: 20120403
  Serious: No
  Sender: FDA-Public Use
  Company Number: US-BAUSCH-2011BL000640

PATIENT
  Age: 33 Year
  Sex: Male

DRUGS (3)
  1. REFRESH [Concomitant]
     Indication: DRY EYE
     Route: 047
  2. NEOMYCIN AND POLYMYXIN B SULFATES AND HYDROCORTISONE [Suspect]
     Route: 047
     Dates: start: 20110131, end: 20110131
  3. OPTIVE [Concomitant]
     Indication: DRY EYE
     Route: 047

REACTIONS (2)
  - INCORRECT ROUTE OF DRUG ADMINISTRATION [None]
  - EYE PAIN [None]
